FAERS Safety Report 5530337-4 (Version None)
Quarter: 2007Q4

REPORT INFORMATION
  Report Type: 
  Country: None (occurrence: None)
  Receive Date: 20071127
  Receipt Date: 20071127
  Transmission Date: 20080405
  Serious: Yes (Other)
  Sender: FDA-Public Use
  Company Number: None

PATIENT
  Age: 10 Day
  Sex: Male

DRUGS (1)
  1. HEPARIN [Suspect]
     Indication: CENTRAL VENOUS CATHETERISATION
     Dosage: 10 UNITS FLUSH IV BOLUS
     Route: 040

REACTIONS (2)
  - INCORRECT DOSE ADMINISTERED [None]
  - INFUSION SITE EXTRAVASATION [None]
